FAERS Safety Report 23418668 (Version 1)
Quarter: 2024Q1

REPORT INFORMATION
  Report Type: Spontaneous
  Country: US (occurrence: US)
  Receive Date: 20240118
  Receipt Date: 20240118
  Transmission Date: 20240409
  Serious: No
  Sender: FDA-Public Use
  Company Number: US-ELI_LILLY_AND_COMPANY-US202401010020

PATIENT
  Age: 46 Year
  Sex: Female

DRUGS (2)
  1. CYMBALTA [Suspect]
     Active Substance: DULOXETINE HYDROCHLORIDE
     Indication: Arthralgia
     Dosage: 60 MG, DAILY
     Route: 048
  2. CYMBALTA [Suspect]
     Active Substance: DULOXETINE HYDROCHLORIDE
     Indication: Panic disorder

REACTIONS (8)
  - Balance disorder [Unknown]
  - Off label use [Unknown]
  - Panic attack [Recovering/Resolving]
  - Withdrawal syndrome [Unknown]
  - Arthralgia [Unknown]
  - Feeling abnormal [Unknown]
  - Disturbance in attention [Unknown]
  - Headache [Unknown]

NARRATIVE: CASE EVENT DATE: 20240116
